FAERS Safety Report 18659937 (Version 2)
Quarter: 2021Q3

REPORT INFORMATION
  Report Type: Spontaneous
  Country: FR (occurrence: FR)
  Receive Date: 20201223
  Receipt Date: 20210902
  Transmission Date: 20211014
  Serious: Yes (Hospitalization)
  Sender: FDA-Public Use
  Company Number: FR-NOVA LABORATORIES LIMITED-2103437

PATIENT
  Age: 28 Year
  Sex: Female

DRUGS (4)
  1. PURIXAN [Suspect]
     Active Substance: MERCAPTOPURINE
     Indication: INFLAMMATORY BOWEL DISEASE
     Dates: start: 20181106
  2. 5?ASA [Suspect]
     Active Substance: MESALAMINE
     Dates: start: 20181023, end: 20190319
  3. REMICADE [Suspect]
     Active Substance: INFLIXIMAB
     Dates: start: 20181017
  4. PREDNISOLONE. [Suspect]
     Active Substance: PREDNISOLONE
     Dates: start: 20181011

REACTIONS (2)
  - Adrenal insufficiency [Recovered/Resolved]
  - Off label use [Unknown]

NARRATIVE: CASE EVENT DATE: 20181207
